FAERS Safety Report 4332426-9 (Version None)
Quarter: 2004Q1

REPORT INFORMATION
  Report Type: 
  Country: None (occurrence: None)
  Receive Date: 20040329
  Receipt Date: 20040126
  Transmission Date: 20041129
  Serious: No
  Sender: FDA-Public Use
  Company Number: 04P-163-0248334

PATIENT
  Age: 75 Year
  Sex: Female

DRUGS (10)
  1. HUMIRA [Suspect]
     Indication: RHEUMATOID ARTHRITIS
     Dosage: SEE IMAGE
     Route: 058
     Dates: start: 20030101, end: 20031224
  2. HUMIRA [Suspect]
     Indication: RHEUMATOID ARTHRITIS
     Dosage: SEE IMAGE
     Route: 058
     Dates: start: 20040124
  3. GLUCOPHAGE [Concomitant]
  4. ATORVASTATIN [Concomitant]
  5. CANDESARTAN CILEXETIL [Concomitant]
  6. INSULIN LISPRO [Concomitant]
  7. ISOPHANE INSULIN [Concomitant]
  8. ASPIRIN [Concomitant]
  9. IBUPROFEN [Concomitant]
  10. VICODIN [Concomitant]

REACTIONS (2)
  - DIABETIC FOOT INFECTION [None]
  - INJECTION SITE BURNING [None]
